FAERS Safety Report 20604565 (Version 1)
Quarter: 2022Q1

REPORT INFORMATION
  Report Type: Spontaneous
  Country: SE (occurrence: SE)
  Receive Date: 20220316
  Receipt Date: 20220316
  Transmission Date: 20220424
  Serious: Yes (Death, Hospitalization)
  Sender: FDA-Public Use
  Company Number: SE-SAMSUNG BIOEPIS-SB-2022-06309

PATIENT
  Age: 75 Year
  Sex: Female

DRUGS (2)
  1. INFLIXIMAB [Suspect]
     Active Substance: INFLIXIMAB
     Indication: Neurosarcoidosis
     Dosage: UNKNOWN, MORE THAN SEVEN YEARS
     Route: 065
  2. METHOTREXATE [Suspect]
     Active Substance: METHOTREXATE
     Indication: Neurosarcoidosis
     Dosage: UNKNOWN, MORE THAN SEVEN YEARS
     Route: 065

REACTIONS (5)
  - COVID-19 [Fatal]
  - Pneumonia bacterial [Fatal]
  - Epstein-Barr virus associated lymphoproliferative disorder [Recovered/Resolved]
  - Hodgkin^s disease [Recovered/Resolved]
  - Off label use [Unknown]
